FAERS Safety Report 18534491 (Version 2)
Quarter: 2021Q1

REPORT INFORMATION
  Report Type: Spontaneous
  Country: US (occurrence: US)
  Receive Date: 20201123
  Receipt Date: 20210120
  Transmission Date: 20210419
  Serious: Yes (Other)
  Sender: FDA-Public Use
  Company Number: US-INCYTE CORPORATION-2020IN011459

PATIENT

DRUGS (2)
  1. JAKAFI [Suspect]
     Active Substance: RUXOLITINIB
     Dosage: 20 MILLIGRAM, QD
     Route: 048
     Dates: start: 201912
  2. JAKAFI [Suspect]
     Active Substance: RUXOLITINIB
     Dosage: 20 MILLIGRAM, QD
     Route: 048
     Dates: start: 201904

REACTIONS (5)
  - Gastric ulcer [Unknown]
  - Blood pressure systolic increased [Unknown]
  - Cerebrovascular accident [Unknown]
  - Oesophageal ulcer [Unknown]
  - Hypertension [Unknown]

NARRATIVE: CASE EVENT DATE: 20191227
